FAERS Safety Report 18269751 (Version 1)
Quarter: 2020Q3

REPORT INFORMATION
  Report Type: Report from Study
  Country: GB (occurrence: GB)
  Receive Date: 20200915
  Receipt Date: 20200915
  Transmission Date: 20201103
  Serious: Yes (Hospitalization, Other)
  Sender: FDA-Public Use
  Company Number: GB-BAYER-2020-198965

PATIENT
  Age: 20 Year
  Sex: Male
  Weight: 95 kg

DRUGS (6)
  1. RED BLOOD CELLS [Concomitant]
     Active Substance: HUMAN RED BLOOD CELL
     Indication: TRANSFUSION
     Dosage: UNK
     Route: 065
     Dates: start: 20191105
  2. TRASYLOL [Suspect]
     Active Substance: APROTININ
     Indication: MITRAL VALVE REPLACEMENT
     Dosage: 100 MILLILITRE TOTAL LOADING DOSE 1 MILLION KIU PUMP PRIMING DOSE 0 MILLION KIU TOTAL CONTINUOUS INF
     Route: 065
     Dates: start: 20191105, end: 20191105
  3. HEPARIN [Concomitant]
     Active Substance: HEPARIN SODIUM
     Indication: ANTICOAGULANT THERAPY
     Dosage: 65 KILO?INTERNATIONAL UNIT TOTAL DURING SURGERY
     Route: 065
     Dates: start: 20191105, end: 20191105
  4. TRASYLOL [Suspect]
     Active Substance: APROTININ
     Indication: AORTIC SURGERY
  5. FRESH FROZEN PLASMA [Concomitant]
     Active Substance: HUMAN PLASMA
     Indication: TRANSFUSION
     Dosage: UNK
     Route: 065
     Dates: start: 20191105
  6. PLATELETS [Concomitant]
     Active Substance: HUMAN PLATELET, ALLOGENIC
     Indication: TRANSFUSION
     Dosage: UNK
     Route: 065
     Dates: start: 20191105

REACTIONS (5)
  - Renal impairment [Recovered/Resolved]
  - Pulmonary embolism [Not Recovered/Not Resolved]
  - Off label use [Unknown]
  - Product use in unapproved indication [Unknown]
  - Product administration error [Unknown]

NARRATIVE: CASE EVENT DATE: 20191105
